FAERS Safety Report 11056652 (Version 2)
Quarter: 2015Q2

REPORT INFORMATION
  Report Type: Spontaneous
  Country: JP (occurrence: JP)
  Receive Date: 20150422
  Receipt Date: 20150429
  Transmission Date: 20150821
  Serious: Yes (Other)
  Sender: FDA-Public Use
  Company Number: JP-BAXTER-2015BAX021044

PATIENT

DRUGS (1)
  1. SUPRANE [Suspect]
     Active Substance: DESFLURANE
     Indication: GENERAL ANAESTHESIA
     Route: 055
     Dates: start: 20150414, end: 20150414

REACTIONS (1)
  - Dyskinesia [Not Recovered/Not Resolved]

NARRATIVE: CASE EVENT DATE: 20150414
